FAERS Safety Report 6567365-6 (Version None)
Quarter: 2010Q1

REPORT INFORMATION
  Report Type: 
  Country: None (occurrence: None)
  Receive Date: 20100202
  Receipt Date: 20100126
  Transmission Date: 20100710
  Serious: Yes (Hospitalization, Other)
  Sender: FDA-Public Use
  Company Number: PHHO2008JP15254

PATIENT
  Sex: Female
  Weight: 54 kg

DRUGS (17)
  1. NEORAL [Suspect]
     Indication: RENAL TRANSPLANT
     Dosage: 150 MG, UNK
     Dates: start: 20081209
  2. NEORAL [Suspect]
     Dosage: 150 MG, UNK
     Dates: start: 20090622
  3. MYCOPHENOLATE MOFETIL [Suspect]
     Indication: RENAL TRANSPLANT
     Dosage: 2 G DAILY
     Route: 048
     Dates: start: 20081212
  4. MEDROL [Suspect]
     Indication: RENAL TRANSPLANT
     Dosage: 20 MG, UNK
     Route: 048
     Dates: start: 20081212
  5. MEDROL [Suspect]
     Dosage: 4 MG, UNK
     Route: 048
     Dates: start: 20090115
  6. PARIET [Concomitant]
     Indication: PROPHYLAXIS AGAINST GASTROINTESTINAL ULCER
     Dosage: 10 MG, UNK
     Route: 048
     Dates: start: 20081209
  7. MICARDIS [Concomitant]
     Indication: RENAL HYPERTENSION
     Dosage: 20 MG, UNK
     Route: 048
  8. MICARDIS [Concomitant]
     Dosage: 60 MG, UNK
     Route: 048
  9. TETRAMIDE [Concomitant]
     Indication: DEPRESSION
     Dosage: UNK
     Route: 048
     Dates: start: 20081215
  10. SOLDEM 1 [Concomitant]
     Indication: FLUID REPLACEMENT
     Dosage: UNK
     Dates: start: 20081211
  11. FLUMARIN [Concomitant]
     Indication: INFECTION PROPHYLAXIS
     Dosage: 2 G, UNK
     Dates: start: 20081212
  12. OMEPRAL [Concomitant]
     Indication: PROPHYLAXIS AGAINST GASTROINTESTINAL ULCER
     Dosage: UNK
     Dates: start: 20081212
  13. VENOGLOBULIN [Concomitant]
     Indication: INFECTION
     Dosage: 500 MG, UNK
     Dates: start: 20081213
  14. ROPIVACAINE [Concomitant]
     Indication: PAIN
     Dosage: 175 MG, UNK
     Dates: start: 20081213
  15. FENTANYL CITRATE [Concomitant]
     Indication: PAIN
     Dosage: 1 MG, UNK
     Dates: start: 20081213
  16. DROPERIDOL [Concomitant]
     Indication: PAIN
     Dosage: 1.5 MG, UNK
     Dates: start: 20081213
  17. NORVASC [Concomitant]
     Indication: RENAL HYPERTENSION
     Dosage: 5 MG, UNK
     Route: 048
     Dates: start: 20090126

REACTIONS (6)
  - ADENOVIRAL HAEMORRHAGIC CYSTITIS [None]
  - DYSURIA [None]
  - HAEMOGLOBIN DECREASED [None]
  - LAPAROTOMY [None]
  - POST PROCEDURAL HAEMORRHAGE [None]
  - RENAL FUNCTION TEST ABNORMAL [None]
